FAERS Safety Report 23612253 (Version 2)
Quarter: 2024Q1

REPORT INFORMATION
  Report Type: Spontaneous
  Country: SE (occurrence: SE)
  Receive Date: 20240308
  Receipt Date: 20240318
  Transmission Date: 20240409
  Serious: Yes (Hospitalization)
  Sender: FDA-Public Use
  Company Number: SE-ABBVIE-5671660

PATIENT
  Age: 20 Year
  Sex: Male

DRUGS (3)
  1. RINVOQ [Suspect]
     Active Substance: UPADACITINIB
     Indication: Inflammatory bowel disease
     Route: 048
     Dates: start: 202308, end: 202310
  2. RINVOQ [Suspect]
     Active Substance: UPADACITINIB
     Indication: Inflammatory bowel disease
     Route: 048
     Dates: start: 202311, end: 2024
  3. MESALAMINE [Concomitant]
     Active Substance: MESALAMINE
     Indication: Product used for unknown indication

REACTIONS (3)
  - Myopericarditis [Not Recovered/Not Resolved]
  - Infection [Not Recovered/Not Resolved]
  - Myopericarditis [Recovered/Resolved]

NARRATIVE: CASE EVENT DATE: 20231001
